FAERS Safety Report 19807721 (Version 1)
Quarter: 2021Q3

REPORT INFORMATION
  Report Type: Report from Study
  Country: US (occurrence: US)
  Receive Date: 20210908
  Receipt Date: 20210908
  Transmission Date: 20211014
  Serious: Yes (Hospitalization)
  Sender: FDA-Public Use
  Company Number: US-REGENERON PHARMACEUTICALS, INC.-2021-81739

PATIENT

DRUGS (1)
  1. CASIRIVIMAB AND IMDEVIMAB [Suspect]
     Active Substance: CASIRIVIMAB\IMDEVIMAB
     Indication: COVID-19 TREATMENT
     Dosage: 1200 MG, SINGLE
     Route: 042
     Dates: start: 20210831, end: 20210831

REACTIONS (4)
  - Hypoaesthesia [Not Recovered/Not Resolved]
  - Seizure [Not Recovered/Not Resolved]
  - Tremor [Not Recovered/Not Resolved]
  - Blood pressure increased [Not Recovered/Not Resolved]

NARRATIVE: CASE EVENT DATE: 20210831
